FAERS Safety Report 18444339 (Version 1)
Quarter: 2020Q4

REPORT INFORMATION
  Report Type: Spontaneous
  Country: US (occurrence: US)
  Receive Date: 20201030
  Receipt Date: 20201030
  Transmission Date: 20210114
  Serious: No
  Sender: FDA-Public Use
  Company Number: US-PFIZER INC-2020413868

PATIENT
  Age: 83 Year
  Sex: Female
  Weight: 56.7 kg

DRUGS (8)
  1. VITAMIN K [MENADIONE] [Concomitant]
     Active Substance: MENADIONE
     Indication: SUPPLEMENTATION THERAPY
     Dosage: 100 MG
  2. PREMARIN [Suspect]
     Active Substance: ESTROGENS, CONJUGATED
     Indication: URINARY TRACT INFECTION
     Dosage: AT VERY SMALL AMOUNT OF PRODUCT
     Route: 067
     Dates: start: 2020, end: 2020
  3. FISH OIL [Concomitant]
     Active Substance: FISH OIL
     Indication: SUPPLEMENTATION THERAPY
     Dosage: 100 MG, DAILY
  4. VITAMIN D3 [Concomitant]
     Active Substance: CHOLECALCIFEROL
     Indication: SUPPLEMENTATION THERAPY
     Dosage: 500 IU
  5. CO-Q-10 PLUS [Concomitant]
     Indication: SUPPLEMENTATION THERAPY
     Dosage: 100 MG, 1X/DAY
  6. VITAMIN B12 [Concomitant]
     Active Substance: CYANOCOBALAMIN
     Indication: SUPPLEMENTATION THERAPY
     Dosage: 5000 MG
  7. MAGNESIUM [Concomitant]
     Active Substance: MAGNESIUM
     Indication: SUPPLEMENTATION THERAPY
     Dosage: UNK
  8. PREMARIN [Suspect]
     Active Substance: ESTROGENS, CONJUGATED
     Indication: NEPHROLITHIASIS

REACTIONS (4)
  - Malaise [Recovered/Resolved]
  - Off label use [Unknown]
  - Product use in unapproved indication [Unknown]
  - Wrong technique in device usage process [Unknown]

NARRATIVE: CASE EVENT DATE: 2020
